FAERS Safety Report 23231633 (Version 3)
Quarter: 2023Q4

REPORT INFORMATION
  Report Type: Spontaneous
  Country: NL (occurrence: NL)
  Receive Date: 20231127
  Receipt Date: 20231208
  Transmission Date: 20240110
  Serious: Yes (Other)
  Sender: FDA-Public Use
  Company Number: None

PATIENT
  Age: 13 Year
  Sex: Male
  Weight: 104 kg

DRUGS (8)
  1. ARIPIPRAZOLE [Suspect]
     Active Substance: ARIPIPRAZOLE
     Indication: Autism spectrum disorder
     Dosage: 7.5 MG, QD (1.5 UNITS)
     Route: 065
     Dates: start: 20190101
  2. FLUOXETINE [Interacting]
     Active Substance: FLUOXETINE HYDROCHLORIDE
     Indication: Depression
     Dosage: 20 MG, QD (ON AND OFF, 1 UNIT DAILY/ 2 UNITS DAILY)
     Route: 065
     Dates: start: 20180101
  3. FLUOXETINE [Interacting]
     Active Substance: FLUOXETINE HYDROCHLORIDE
     Indication: Affective disorder
  4. SUMATRIPTAN [Interacting]
     Active Substance: SUMATRIPTAN
     Indication: Migraine without aura
     Dosage: 20 MG, BID (1 TO 2 TIMES DAILY (IF NECESSARY) OR MIGRAINE)
     Route: 065
     Dates: start: 20180101, end: 20231114
  5. CONCERTA [Suspect]
     Active Substance: METHYLPHENIDATE HYDROCHLORIDE
     Indication: Product used for unknown indication
     Dosage: 36 MG, QD
     Route: 065
     Dates: start: 20230101
  6. TRAMADOL [Interacting]
     Active Substance: TRAMADOL\TRAMADOL HYDROCHLORIDE
     Indication: Fibromyalgia
     Dosage: 50 MG, TID (EVERY 8 H)
     Route: 065
     Dates: start: 20231101, end: 20231114
  7. TRAMADOL [Interacting]
     Active Substance: TRAMADOL\TRAMADOL HYDROCHLORIDE
     Indication: Pain
  8. RITALIN [Suspect]
     Active Substance: METHYLPHENIDATE HYDROCHLORIDE
     Indication: Product used for unknown indication
     Dosage: 10 MG, QD (1 UNIT)
     Route: 065
     Dates: start: 20230301

REACTIONS (2)
  - Serotonin syndrome [Recovering/Resolving]
  - Product use in unapproved indication [Unknown]
